FAERS Safety Report 4591370-2 (Version None)
Quarter: 2005Q1

REPORT INFORMATION
  Report Type: 
  Country: None (occurrence: None)
  Receive Date: 20050225
  Receipt Date: 20050121
  Transmission Date: 20050727
  Serious: Yes (Hospitalization)
  Sender: FDA-Public Use
  Company Number: PHBS2005RO01182

PATIENT
  Age: 33 Year
  Sex: Male
  Weight: 76 kg

DRUGS (1)
  1. GLEEVEC [Suspect]
     Indication: CHRONIC MYELOID LEUKAEMIA
     Dosage: 400 MG/D
     Route: 048
     Dates: start: 20021201

REACTIONS (2)
  - BLINDNESS [None]
  - OPTIC NERVE DISORDER [None]
